FAERS Safety Report 8281069-3 (Version None)
Quarter: 2012Q2

REPORT INFORMATION
  Report Type: 
  Country: None (occurrence: None)
  Receive Date: 20120412
  Receipt Date: 20120330
  Transmission Date: 20120825
  Serious: Yes (Other)
  Sender: FDA-Public Use
  Company Number: US-MYLANLABS-2012S1007082

PATIENT
  Age: 54 Year
  Sex: Female

DRUGS (9)
  1. TACROLIMUS [Suspect]
     Indication: HEART TRANSPLANT
     Dosage: 4MG IN THE MORNING AND 5MG IN THE EVENING
     Route: 048
  2. AZITHROMYCIN [Interacting]
     Indication: PNEUMONIA
     Dosage: 500MG DAILY
     Route: 042
  3. ATORVASTATIN [Concomitant]
     Dosage: 10MG DAILY
     Route: 065
  4. CEFTRIAXONE [Interacting]
     Indication: PNEUMONIA
     Dosage: 2G DAILY ON DAY 1 AND 2
     Route: 042
  5. CONJUGATED ESTROGENS [Concomitant]
     Dosage: 2.5MG DAILY
     Route: 065
  6. LISINOPRIL [Concomitant]
     Dosage: 10MG DAILY
     Route: 065
  7. SUMATRIPTAN [Concomitant]
     Route: 065
  8. CEFTRIAXONE [Interacting]
     Dosage: 1G IN ED
     Route: 042
  9. PREDNISONE TAB [Concomitant]
     Dosage: 5MG DAILY
     Route: 065

REACTIONS (2)
  - IMMUNOSUPPRESSANT DRUG LEVEL INCREASED [None]
  - DRUG INTERACTION [None]
